FAERS Safety Report 7328919-2 (Version None)
Quarter: 2011Q1

REPORT INFORMATION
  Report Type: 
  Country: None (occurrence: None)
  Receive Date: 20110303
  Receipt Date: 20110220
  Transmission Date: 20110831
  Serious: Yes (Hospitalization)
  Sender: FDA-Public Use
  Company Number: US-ELI_LILLY_AND_COMPANY-US201102005078

PATIENT
  Sex: Female

DRUGS (12)
  1. CREON [Concomitant]
     Indication: PANCREATIC INSUFFICIENCY
     Route: 048
     Dates: start: 20101130
  2. NORMAL SALINE [Concomitant]
     Route: 042
     Dates: start: 20110111
  3. PACLITAXEL [Suspect]
     Indication: PANCREATIC CARCINOMA
     Dosage: 213 MG, OTHER 125 MG/M2
     Route: 065
     Dates: start: 20110114, end: 20110121
  4. EMEND [Concomitant]
     Indication: NAUSEA
     Dosage: UNK, UNK
     Route: 048
     Dates: start: 20110121
  5. MULTI-VITAMIN [Concomitant]
     Indication: VITAMIN SUPPLEMENTATION
     Route: 042
     Dates: start: 20110111
  6. REGLAN [Concomitant]
     Indication: VOMITING
     Route: 048
     Dates: start: 20101228
  7. ZOFRAN [Concomitant]
     Indication: NAUSEA
     Route: 042
     Dates: start: 20101228
  8. DECADRON [Concomitant]
     Indication: PROPHYLAXIS
     Route: 042
     Dates: start: 20110114
  9. ZOFRAN [Concomitant]
     Indication: VOMITING
     Route: 048
     Dates: start: 20101228
  10. ATIVAN [Concomitant]
     Indication: NAUSEA
     Route: 042
     Dates: start: 20110117
  11. GEMCITABINE HYDROCHLORIDE [Suspect]
     Indication: PANCREATIC CARCINOMA
     Dosage: 1700 MG, OTHER 1000 MG/M2
     Route: 065
     Dates: start: 20110114, end: 20110128
  12. SULAR [Concomitant]
     Indication: HYPERTENSION
     Route: 048

REACTIONS (1)
  - HYPOKALAEMIA [None]
